FAERS Safety Report 8398787 (Version 4)
Quarter: 2014Q1

REPORT INFORMATION
  Report Type: Report from Study
  Country: US (occurrence: US)
  Receive Date: 20120210
  Receipt Date: 20140311
  Transmission Date: 20141002
  Serious: Yes (Other)
  Sender: FDA-Public Use
  Company Number: US-BIOGENIDEC-2012BI004330

PATIENT
  Age: 48 Year
  Sex: Female

DRUGS (12)
  1. TYSABRI [Suspect]
     Indication: MULTIPLE SCLEROSIS
     Route: 042
     Dates: start: 20090811, end: 20111227
  2. TYSABRI [Suspect]
     Indication: MULTIPLE SCLEROSIS
     Route: 042
     Dates: start: 20130409
  3. ACIDOPHILUS [Concomitant]
  4. BACLOFEN [Concomitant]
     Route: 048
  5. CALCIUM WITH VITAMIN D [Concomitant]
     Route: 048
  6. CALCIUM WITH VITAMIN D [Concomitant]
     Route: 048
  7. CYMBALTA [Concomitant]
     Route: 048
  8. FOSAMAX [Concomitant]
  9. MULTIVITAMIN [Concomitant]
  10. OMEGA 3 [Concomitant]
  11. VALTREX [Concomitant]
     Route: 048
  12. WELBUTRIN [Concomitant]
     Route: 048

REACTIONS (1)
  - Intraductal proliferative breast lesion [Not Recovered/Not Resolved]
